FAERS Safety Report 6595579-8 (Version None)
Quarter: 2010Q1

REPORT INFORMATION
  Report Type: 
  Country: None (occurrence: None)
  Receive Date: 20100222
  Receipt Date: 20100222
  Transmission Date: 20100710
  Serious: Yes (Hospitalization)
  Sender: FDA-Public Use
  Company Number: None

PATIENT
  Age: 56 Year
  Sex: Female
  Weight: 54.4316 kg

DRUGS (2)
  1. VITAMIN D [Suspect]
     Indication: VITAMIN D DECREASED
     Dosage: 50,000 U. ONCE WEEKLY PO
     Route: 048
     Dates: start: 20091012
  2. VITAMIN D [Suspect]
     Indication: VITAMIN D DECREASED
     Dosage: 50,000 U. ONCE WEEKLY PO
     Route: 048
     Dates: start: 20091017

REACTIONS (4)
  - HEADACHE [None]
  - MIGRAINE [None]
  - NAUSEA [None]
  - VOMITING [None]
